FAERS Safety Report 5151048-3 (Version None)
Quarter: 2006Q4

REPORT INFORMATION
  Report Type: 
  Country: None (occurrence: None)
  Receive Date: 20061114
  Receipt Date: 20061114
  Transmission Date: 20070319
  Serious: Yes (Hospitalization)
  Sender: FDA-Public Use
  Company Number: None

PATIENT
  Sex: Male
  Weight: 54.5 kg

DRUGS (9)
  1. CAMPTOSAR [Suspect]
     Dosage: 425 MG
  2. TEMOZOLOMIDE [Suspect]
     Dosage: 850 MG
  3. VINCRISTINE SULFATE [Suspect]
     Dosage: 2 MG
  4. BACTRIM [Concomitant]
  5. CELEXA [Concomitant]
  6. DECADRON [Concomitant]
  7. FENTANYL TRANSDERMAL SYSTEM [Concomitant]
  8. NEURONTIN [Concomitant]
  9. OXYCODONE HCL [Concomitant]

REACTIONS (19)
  - ABDOMINAL DISTENSION [None]
  - ABDOMINAL PAIN [None]
  - ACTIVATED PARTIAL THROMBOPLASTIN TIME PROLONGED [None]
  - ALANINE AMINOTRANSFERASE INCREASED [None]
  - AMMONIA INCREASED [None]
  - ARRHYTHMIA [None]
  - ASPARTATE AMINOTRANSFERASE INCREASED [None]
  - BLOOD BILIRUBIN INCREASED [None]
  - BLOOD SODIUM DECREASED [None]
  - BLOOD UREA INCREASED [None]
  - CONFUSIONAL STATE [None]
  - HYPERKALAEMIA [None]
  - LETHARGY [None]
  - LIVER FUNCTION TEST ABNORMAL [None]
  - NEOPLASM PROGRESSION [None]
  - PROTHROMBIN TIME PROLONGED [None]
  - REFUSAL OF TREATMENT BY RELATIVE [None]
  - RESPIRATORY FAILURE [None]
  - THROMBOCYTOPENIA [None]
